FAERS Safety Report 22261581 (Version 2)
Quarter: 2023Q2

REPORT INFORMATION
  Report Type: Report from Study
  Country: US (occurrence: US)
  Receive Date: 20230427
  Receipt Date: 20230503
  Transmission Date: 20230722
  Serious: Yes (Other)
  Sender: FDA-Public Use
  Company Number: US-ABBVIE-4290622

PATIENT
  Sex: Female
  Weight: 66.224 kg

DRUGS (4)
  1. HUMIRA [Suspect]
     Active Substance: ADALIMUMAB
     Indication: Rheumatoid arthritis
     Dosage: CITRATE FREE?FIRST ADMIN DATE 17 DEC 2021
     Route: 058
     Dates: start: 20211217
  2. HUMIRA [Suspect]
     Active Substance: ADALIMUMAB
     Dosage: CITRATE FREE
     Route: 058
  3. HUMIRA [Suspect]
     Active Substance: ADALIMUMAB
     Dosage: CITRATE FREE
     Route: 058
  4. METHOTREXATE [Concomitant]
     Active Substance: METHOTREXATE
     Indication: Rheumatoid arthritis

REACTIONS (6)
  - Spinal osteoarthritis [Recovering/Resolving]
  - Pain in extremity [Not Recovered/Not Resolved]
  - Hysterectomy [Unknown]
  - Dislocation of vertebra [Unknown]
  - Procedural complication [Unknown]
  - Back pain [Unknown]

NARRATIVE: CASE EVENT DATE: 20210101
